FAERS Safety Report 13071827 (Version 1)
Quarter: 2016Q4

REPORT INFORMATION
  Report Type: Spontaneous
  Country: US (occurrence: US)
  Receive Date: 20161229
  Receipt Date: 20161229
  Transmission Date: 20170207
  Serious: Yes (Other)
  Sender: FDA-Public Use
  Company Number: US-SEPTODONT-201603724

PATIENT
  Age: 28 Year
  Sex: Female
  Weight: 59 kg

DRUGS (3)
  1. SEPTOCAINE AND EPINEPHRINE [Suspect]
     Active Substance: ARTICAINE HYDROCHLORIDE\EPINEPHRINE BITARTRATE
     Indication: LOCAL ANAESTHESIA
     Dosage: INFILTRATION IN UPPER LEFT HEALTHY TISSUE WITH 30G 1.9CM MONOJECT NEEDLE
     Route: 004
     Dates: start: 20161101, end: 20161101
  2. LORATADINE. [Concomitant]
     Active Substance: LORATADINE
  3. BENZOCAINE. [Concomitant]
     Active Substance: BENZOCAINE
     Route: 061
     Dates: start: 20161101, end: 20161101

REACTIONS (2)
  - Obstructive airways disorder [Recovered/Resolved]
  - Swelling face [Recovered/Resolved]

NARRATIVE: CASE EVENT DATE: 20161101
